FAERS Safety Report 22602554 (Version 1)
Quarter: 2023Q2

REPORT INFORMATION
  Report Type: Spontaneous
  Country: US (occurrence: US)
  Receive Date: 20230614
  Receipt Date: 20230614
  Transmission Date: 20230722
  Serious: Yes (Death, Hospitalization)
  Sender: FDA-Public Use
  Company Number: US-STRIDES ARCOLAB LIMITED-2023SP009389

PATIENT
  Age: 64 Year
  Sex: Male

DRUGS (10)
  1. PREDNISOLONE [Suspect]
     Active Substance: PREDNISOLONE
     Indication: Graft versus host disease in skin
     Dosage: UNK (THE PATIENT RECEIVED HIGH DOSE PREDNISOLONE)
     Route: 065
  2. PREDNISOLONE [Suspect]
     Active Substance: PREDNISOLONE
     Indication: Graft versus host disease in gastrointestinal tract
  3. PREDNISOLONE [Suspect]
     Active Substance: PREDNISOLONE
     Indication: Graft versus host disease
  4. MYCOPHENOLATE MOFETIL [Suspect]
     Active Substance: MYCOPHENOLATE MOFETIL
     Indication: Immunosuppressant drug therapy
     Dosage: UNK
     Route: 065
  5. MYCOPHENOLATE MOFETIL [Suspect]
     Active Substance: MYCOPHENOLATE MOFETIL
     Indication: Liver transplant
  6. TACROLIMUS [Suspect]
     Active Substance: TACROLIMUS
     Indication: Immunosuppressant drug therapy
     Dosage: UNK
     Route: 065
  7. TACROLIMUS [Suspect]
     Active Substance: TACROLIMUS
     Indication: Liver transplant
  8. ETANERCEPT [Suspect]
     Active Substance: ETANERCEPT
     Indication: Graft versus host disease in gastrointestinal tract
     Dosage: UNK, 2 TIMES A WEEK (THE PATIENT RECEIVED ETANERCEPT TWICE WEEKLY)
     Route: 065
  9. ETANERCEPT [Suspect]
     Active Substance: ETANERCEPT
     Indication: Graft versus host disease in skin
  10. ETANERCEPT [Suspect]
     Active Substance: ETANERCEPT
     Indication: Graft versus host disease

REACTIONS (6)
  - Bronchopulmonary aspergillosis [Fatal]
  - Enterococcal infection [Fatal]
  - Enterococcal bacteraemia [Fatal]
  - Staphylococcal infection [Unknown]
  - Staphylococcal bacteraemia [Unknown]
  - Cryptococcosis [Recovered/Resolved]
